FAERS Safety Report 14770241 (Version 1)
Quarter: 2018Q2

REPORT INFORMATION
  Report Type: Spontaneous
  Country: US (occurrence: US)
  Receive Date: 20180417
  Receipt Date: 20180417
  Transmission Date: 20180711
  Serious: No
  Sender: FDA-Public Use
  Company Number: US-TEVA-2018-US-873420

PATIENT
  Age: 83 Year
  Sex: Female
  Weight: 73.47 kg

DRUGS (5)
  1. ZOLPIDEM [Concomitant]
     Active Substance: ZOLPIDEM\ZOLPIDEM TARTRATE
  2. ALPRAZOLAM. [Concomitant]
     Active Substance: ALPRAZOLAM
     Dates: start: 2010
  3. FAMOTIDINE. [Concomitant]
     Active Substance: FAMOTIDINE
  4. VERAPAMIL [Concomitant]
     Active Substance: VERAPAMIL HYDROCHLORIDE
     Dates: start: 2010
  5. MUCUS DM [Suspect]
     Active Substance: DEXTROMETHORPHAN HYDROBROMIDE\GUAIFENESIN
     Indication: PERENNIAL ALLERGY
     Dosage: DAILY DOSE: ONE CAPLET, AT BEDTIME;  GUAIFENESIN 1200 MG, DEXTROMETHORPHAN HYDROBROMIDE 60 MG)
     Route: 048
     Dates: start: 20180219, end: 20180220

REACTIONS (2)
  - Feeling abnormal [Recovered/Resolved]
  - Off label use [Unknown]

NARRATIVE: CASE EVENT DATE: 20180221
